FAERS Safety Report 18164961 (Version 1)
Quarter: 2020Q3

REPORT INFORMATION
  Report Type: Spontaneous
  Country: IT (occurrence: IT)
  Receive Date: 20200818
  Receipt Date: 20200818
  Transmission Date: 20201103
  Serious: Yes (Hospitalization)
  Sender: FDA-Public Use
  Company Number: IT-ASTRAZENECA-2020SE98191

PATIENT
  Age: 44 Year
  Sex: Female

DRUGS (8)
  1. TRIATEC [Concomitant]
     Dosage: 5.0MG UNKNOWN
  2. PANTOPRAZOLE [Concomitant]
     Active Substance: PANTOPRAZOLE
     Dosage: 40.0MG UNKNOWN
  3. DELTACORTENE [Concomitant]
     Active Substance: PREDNISONE
     Route: 065
  4. FLUTICASONE. [Concomitant]
     Active Substance: FLUTICASONE
  5. NASONEX [Concomitant]
     Active Substance: MOMETASONE FUROATE
     Dosage: 50.0UG/INHAL UNKNOWN
  6. RIVOTRIL [Concomitant]
     Active Substance: CLONAZEPAM
     Route: 065
  7. FASENRA [Suspect]
     Active Substance: BENRALIZUMAB
     Indication: ASTHMA
     Dosage: 30.0MG EVERY CYCLE
     Route: 058
     Dates: start: 20191127, end: 20200611
  8. BISOPROLOL FUMARATE. [Concomitant]
     Active Substance: BISOPROLOL FUMARATE
     Dosage: 2.5MG UNKNOWN

REACTIONS (2)
  - Asthma [Recovered/Resolved]
  - Loss of consciousness [Recovered/Resolved]

NARRATIVE: CASE EVENT DATE: 20200611
